FAERS Safety Report 8361012-9 (Version None)
Quarter: 2012Q2

REPORT INFORMATION
  Report Type: 
  Country: None (occurrence: None)
  Receive Date: 20120514
  Receipt Date: 20120426
  Transmission Date: 20120825
  Serious: Yes (Hospitalization)
  Sender: FDA-Public Use
  Company Number: 20120272

PATIENT
  Age: 83 Year
  Sex: Female

DRUGS (1)
  1. VENOFER [Suspect]
     Indication: PRODUCT USED FOR UNKNOWN INDICATION
     Dosage: 1 DOSAGE FORM INTRAVENOUS DRIP
     Route: 041
     Dates: start: 20111025, end: 20111025

REACTIONS (3)
  - THROMBOPHLEBITIS SUPERFICIAL [None]
  - EXTRAVASATION [None]
  - CELLULITIS [None]
